FAERS Safety Report 16449703 (Version 1)
Quarter: 2019Q2

REPORT INFORMATION
  Report Type: Spontaneous
  Country: US (occurrence: US)
  Receive Date: 20190619
  Receipt Date: 20190619
  Transmission Date: 20190711
  Serious: No
  Sender: FDA-Public Use
  Company Number: US-TEVA-2019-US-1055748

PATIENT
  Age: 51 Year
  Sex: Male

DRUGS (4)
  1. IRINOTECAN [Interacting]
     Active Substance: IRINOTECAN
     Indication: PANCREATIC CARCINOMA METASTATIC
     Dosage: OCCURRENCE AT 1ST INFUSION
     Route: 041
  2. OXALIPLATIN. [Suspect]
     Active Substance: OXALIPLATIN
     Indication: PANCREATIC CARCINOMA METASTATIC
     Dosage: THERAPY ADMINISTERED FOR 2 HOURS BEFORE IRINOTECAN
     Route: 065
  3. 5-FLUOROURACIL [Suspect]
     Active Substance: FLUOROURACIL
     Indication: PANCREATIC CARCINOMA METASTATIC
     Dosage: PLANNED FOR 15 MIN
     Route: 050
  4. 5-FLUOROURACIL [Suspect]
     Active Substance: FLUOROURACIL
     Dosage: CONTINUOUS; PLANNED FOR 46 HOURS
     Route: 050

REACTIONS (3)
  - Drug interaction [Recovered/Resolved]
  - Abdominal pain [Unknown]
  - Dysarthria [Recovered/Resolved]
